FAERS Safety Report 9307082 (Version 2)
Quarter: 2013Q4

REPORT INFORMATION
  Report Type: Spontaneous
  Country: US (occurrence: US)
  Receive Date: 20130523
  Receipt Date: 20131114
  Transmission Date: 20140711
  Serious: Yes (Hospitalization)
  Sender: FDA-Public Use
  Company Number: US-B.I. PHARMACEUTICALS,INC./RIDGEFIELD-2013-BI-14419BP

PATIENT
  Age: 69 Year
  Sex: Male
  Weight: 90.72 kg

DRUGS (21)
  1. PRADAXA [Suspect]
     Indication: ANTICOAGULANT THERAPY
     Dosage: 300 MG
     Route: 048
     Dates: start: 20101112, end: 20130207
  2. ZYLOPRIM [Concomitant]
     Dosage: 300 MG
     Route: 048
  3. XANAX [Concomitant]
     Route: 048
  4. ELAVIL [Concomitant]
     Dosage: 25 MG
     Route: 048
  5. NORVASC [Concomitant]
     Dosage: 5 MG
     Route: 048
  6. ASPIRIN [Concomitant]
     Dosage: 81 MG
     Route: 048
  7. COREG [Concomitant]
     Dosage: 50 MG
     Route: 048
  8. CATAPRESS [Concomitant]
     Dosage: 0.2 MG
     Route: 048
  9. CARDURA [Concomitant]
     Dosage: 8 MG
     Route: 048
  10. IRON [Concomitant]
     Dosage: 325 MG
     Route: 048
  11. PROSCAR [Concomitant]
     Dosage: 5 MG
     Route: 048
  12. LASIX [Concomitant]
     Dosage: 80 MG
     Route: 048
  13. DIABETA [Concomitant]
     Dosage: 5 MG
     Route: 048
  14. HYDRODIURIL [Concomitant]
     Dosage: 25 MG
     Route: 048
  15. VICODIN [Concomitant]
     Indication: PAIN
     Route: 048
  16. IMDUR [Concomitant]
     Dosage: 120 MG
     Route: 048
  17. GLUCOPHAGE [Concomitant]
     Dosage: 200 MG
     Route: 048
  18. JANUVIA [Concomitant]
     Dosage: 50 MG
     Route: 048
  19. NITROSTAT [Concomitant]
     Route: 060
  20. BENICAR [Concomitant]
     Dosage: 40 MG
     Route: 048
  21. ZANAFLEX [Concomitant]
     Route: 048

REACTIONS (2)
  - Gastrointestinal haemorrhage [Recovered/Resolved]
  - Haemorrhagic anaemia [Recovered/Resolved]
